FAERS Safety Report 4502276-9 (Version None)
Quarter: 2004Q4

REPORT INFORMATION
  Report Type: 
  Country: None (occurrence: None)
  Receive Date: 20041109
  Receipt Date: 20041026
  Transmission Date: 20050328
  Serious: Yes (Death)
  Sender: FDA-Public Use
  Company Number: D01200400319

PATIENT
  Age: 72 Year
  Sex: Male

DRUGS (10)
  1. CISPLATIN [Suspect]
     Indication: SMALL CELL LUNG CANCER EXTENSIVE STAGE
     Dosage: 80 MG/M2 CONT INTRAVENOUS NOS
     Route: 042
     Dates: start: 20031229, end: 20031229
  2. ETOPOSIDE [Suspect]
     Indication: SMALL CELL LUNG CANCER EXTENSIVE STAGE
     Dosage: 270 MG GIVEN ON DAYS, 1, 2 AND 3, IN A 30-MINUTE INFUSION - INTRAVENOUS NOS
     Route: 042
     Dates: start: 20031229, end: 20031231
  3. FORMOTEROL FUMARATE [Concomitant]
  4. THEOPHYLLINE [Concomitant]
  5. KETOPROFEN [Concomitant]
  6. TRAMADOL HCL [Concomitant]
  7. ZOPICLONE [Concomitant]
  8. GLICLAZIDE [Concomitant]
  9. FUROSEMIDE [Concomitant]
  10. ONDANSETRON HCL [Concomitant]

REACTIONS (1)
  - WHITE BLOOD CELL COUNT INCREASED [None]
